FAERS Safety Report 5104155-5 (Version None)
Quarter: 2006Q3

REPORT INFORMATION
  Report Type: 
  Country: None (occurrence: None)
  Receive Date: 20060911
  Receipt Date: 20060831
  Transmission Date: 20061208
  Serious: Yes (Death, Hospitalization)
  Sender: FDA-Public Use
  Company Number: HQWYE310705SEP06

PATIENT
  Age: 64 Year
  Sex: Male

DRUGS (10)
  1. MYLOTARG [Suspect]
     Indication: ACUTE MYELOID LEUKAEMIA RECURRENT
     Dosage: 9 MG/M^2 1X PER 1 DAY INTRAVENOUS DRIP
     Route: 041
     Dates: start: 20060327, end: 20060327
  2. FUNGUARD (MICAFUNGIN SODIUM) [Concomitant]
  3. SULFAMETHOXAZOLE + TRIMETHOPRIM [Concomitant]
  4. LOXONIN (LOXOPROFEN SODIUM) [Concomitant]
  5. MUCOSTA (REBAMIPIDE) [Concomitant]
  6. ROCEPHIN [Concomitant]
  7. SAXIZON (HYDROCORTISONE SODIUM SUCCINATE) [Concomitant]
  8. NEUPOGEN [Concomitant]
  9. LASIX [Concomitant]
  10. HUMULIN R [Concomitant]

REACTIONS (15)
  - ACUTE MYELOID LEUKAEMIA [None]
  - ASPARTATE AMINOTRANSFERASE INCREASED [None]
  - COAGULOPATHY [None]
  - HYPERBILIRUBINAEMIA [None]
  - HYPERGLYCAEMIA [None]
  - HYPOCHLORAEMIA [None]
  - HYPOKALAEMIA [None]
  - HYPONATRAEMIA [None]
  - HYPOTENSION [None]
  - MALIGNANT NEOPLASM PROGRESSION [None]
  - PERFORMANCE STATUS DECREASED [None]
  - PYREXIA [None]
  - RED BLOOD CELL COUNT DECREASED [None]
  - RENAL IMPAIRMENT [None]
  - WHITE BLOOD CELL COUNT DECREASED [None]
